FAERS Safety Report 13764512 (Version 1)
Quarter: 2017Q3

REPORT INFORMATION
  Report Type: Spontaneous
  Country: FR (occurrence: FR)
  Receive Date: 20170718
  Receipt Date: 20170718
  Transmission Date: 20171127
  Serious: Yes (Hospitalization)
  Sender: FDA-Public Use
  Company Number: FR-SA-2017SA129084

PATIENT
  Age: 86 Year
  Sex: Female

DRUGS (6)
  1. TAHOR [Suspect]
     Active Substance: ATORVASTATIN CALCIUM
     Indication: DYSLIPIDAEMIA
     Route: 048
     Dates: end: 201701
  2. PLAVIX [Suspect]
     Active Substance: CLOPIDOGREL BISULFATE
     Indication: PERIPHERAL ARTERIAL OCCLUSIVE DISEASE
     Route: 048
     Dates: end: 201701
  3. BIPRETERAX [Suspect]
     Active Substance: INDAPAMIDE\PERINDOPRIL
     Indication: HYPERTENSION
     Route: 048
     Dates: end: 20170106
  4. SEROPLEX [Concomitant]
     Active Substance: ESCITALOPRAM OXALATE
     Route: 048
  5. LEVOTHYROX [Concomitant]
     Active Substance: LEVOTHYROXINE
     Route: 048
  6. NAFTIDROFURYL OXALATE [Suspect]
     Active Substance: NAFRONYL OXALATE
     Route: 048
     Dates: end: 20170106

REACTIONS (1)
  - Acute kidney injury [Recovered/Resolved]

NARRATIVE: CASE EVENT DATE: 20170106
